FAERS Safety Report 9188576 (Version 2)
Quarter: 2013Q2

REPORT INFORMATION
  Report Type: Spontaneous
  Country: ES (occurrence: ES)
  Receive Date: 20130325
  Receipt Date: 20130403
  Transmission Date: 20140414
  Serious: Yes (Hospitalization)
  Sender: FDA-Public Use
  Company Number: ES-BAYER-2013-037142

PATIENT
  Age: 74 Year
  Sex: Male

DRUGS (6)
  1. ADIRO 100 [Suspect]
     Indication: PERIPHERAL ARTERIAL OCCLUSIVE DISEASE
     Dosage: 100 MG, QD
     Route: 048
     Dates: start: 2006, end: 20120911
  2. SINTROM [Interacting]
     Indication: DEEP VEIN THROMBOSIS
     Route: 048
     Dates: start: 201104, end: 20120911
  3. PANTOPRAZOLE [Concomitant]
     Indication: PROPHYLAXIS
     Dosage: 40 MG, QD
     Route: 048
     Dates: start: 20120901
  4. CARDYL [Concomitant]
     Dosage: 40 MG, QD
     Route: 048
     Dates: start: 20120901, end: 20120911
  5. ADOLONTA [Concomitant]
     Dosage: 50 MG, TID
     Route: 048
     Dates: start: 20120901, end: 20120911
  6. ORFIDAL [Concomitant]
     Dosage: 1 MG, QD
     Route: 048
     Dates: start: 2011

REACTIONS (3)
  - Anaemia [Recovered/Resolved]
  - Hypovolaemic shock [Recovered/Resolved]
  - Hypocoagulable state [Recovered/Resolved with Sequelae]
